FAERS Safety Report 18092553 (Version 1)
Quarter: 2020Q3

REPORT INFORMATION
  Report Type: Spontaneous
  Country: US (occurrence: US)
  Receive Date: 20200730
  Receipt Date: 20200730
  Transmission Date: 20201103
  Serious: No
  Sender: FDA-Public Use
  Company Number: None

PATIENT
  Age: 35 Year
  Sex: Male

DRUGS (1)
  1. HUMIRA [Suspect]
     Active Substance: ADALIMUMAB
     Indication: PSORIASIS
     Route: 058
     Dates: start: 20200605

REACTIONS (4)
  - Wrong technique in product usage process [None]
  - Product dose omission issue [None]
  - Injection site extravasation [None]
  - Symptom recurrence [None]

NARRATIVE: CASE EVENT DATE: 20200727
